FAERS Safety Report 16694608 (Version 1)
Quarter: 2019Q3

REPORT INFORMATION
  Report Type: Spontaneous
  Country: JP (occurrence: JP)
  Receive Date: 20190812
  Receipt Date: 20190812
  Transmission Date: 20191004
  Serious: Yes (Other)
  Sender: FDA-Public Use
  Company Number: JP-BAUSCH-BL-2019-022016

PATIENT
  Age: 75 Year
  Sex: Female
  Weight: 47.9 kg

DRUGS (5)
  1. RITUXIMAB. [Suspect]
     Active Substance: RITUXIMAB
     Indication: ANGIOCENTRIC LYMPHOMA
     Dosage: ON DAY 1 (2 CYCLES OF REDUCED R-CHOP THERAPY)
     Route: 065
  2. DOXORUBICIN [Suspect]
     Active Substance: DOXORUBICIN
     Indication: ANGIOCENTRIC LYMPHOMA
     Dosage: ON DAY 1 (2 CYCLES OF REDUCED R-CHOP THERAPY)
     Route: 065
  3. VINCRISTINE [Suspect]
     Active Substance: VINCRISTINE
     Indication: ANGIOCENTRIC LYMPHOMA
     Dosage: ON DAY 1 (2 CYCLES OF REDUCED R-CHOP THERAPY)
     Route: 065
  4. CYCLOPHOSPHAMIDE. [Suspect]
     Active Substance: CYCLOPHOSPHAMIDE
     Indication: ANGIOCENTRIC LYMPHOMA
     Dosage: ON DAY 1 (2 CYCLES OF REDUCED R-CHOP THERAPY)
     Route: 065
  5. PREDNISOLONE. [Suspect]
     Active Substance: PREDNISOLONE
     Indication: ANGIOCENTRIC LYMPHOMA
     Dosage: 100 MG/BODY ON DAYS 1 TO 5 (2 CYCLES OF REDUCED R-CHOP THERAPY)
     Route: 065

REACTIONS (3)
  - Febrile neutropenia [Unknown]
  - Decreased appetite [Unknown]
  - Malaise [Unknown]
